FAERS Safety Report 10300424 (Version 2)
Quarter: 2014Q3

REPORT INFORMATION
  Report Type: Spontaneous
  Country: DE (occurrence: DE)
  Receive Date: 20140713
  Receipt Date: 20140713
  Transmission Date: 20150326
  Serious: Yes (Hospitalization)
  Sender: FDA-Public Use
  Company Number: PHHY2014DE080677

PATIENT
  Age: 72 Year
  Weight: 54.5 kg

DRUGS (2)
  1. ACICLOVIR [Suspect]
     Active Substance: ACYCLOVIR
     Indication: HERPES ZOSTER
     Dosage: 800 MG, 5X DAILY
     Route: 048
  2. CICLOSPORIN [Suspect]
     Active Substance: CYCLOSPORINE
     Indication: RENAL TRANSPLANT

REACTIONS (9)
  - Renal atrophy [Recovering/Resolving]
  - Dysuria [Recovering/Resolving]
  - Mucosal dryness [Recovering/Resolving]
  - Hypovolaemia [Recovering/Resolving]
  - Blood creatinine increased [Recovering/Resolving]
  - Renal failure acute [Recovering/Resolving]
  - Chronic allograft nephropathy [Recovering/Resolving]
  - Crystal nephropathy [Recovering/Resolving]
  - Renal tubular disorder [Recovering/Resolving]
